FAERS Safety Report 21838261 (Version 4)
Quarter: 2023Q1

REPORT INFORMATION
  Report Type: Spontaneous
  Country: PT (occurrence: PT)
  Receive Date: 20230109
  Receipt Date: 20230323
  Transmission Date: 20230418
  Serious: Yes (Disabling, Other)
  Sender: FDA-Public Use
  Company Number: None

PATIENT
  Age: 39 Year
  Sex: Female
  Weight: 54 kg

DRUGS (3)
  1. ORGALUTRAN [Suspect]
     Active Substance: GANIRELIX ACETATE
     Indication: Assisted fertilisation
     Dosage: 1 INJECTION IN THE MORNING, FORMULATION: SOLUTION FOR INJECTION IN PRE-FILLED SYRINGE; STRENGTH: 0.2
     Route: 058
     Dates: start: 20221126, end: 20221128
  2. GONAL-F [Concomitant]
     Active Substance: FOLLITROPIN
     Indication: Assisted fertilisation
     Dosage: 300 INTERNATIONAL UNIT, QD, FORMULATION: SOLUTION FOR INJECTION IN PRE-FILLED PEN; STRENGTH: 900 U.I
     Route: 058
     Dates: start: 20221121, end: 20221127
  3. LEVOTHYROXINE SODIUM [Concomitant]
     Active Substance: LEVOTHYROXINE SODIUM
     Dosage: UNK
     Route: 048

REACTIONS (3)
  - Pain in extremity [Unknown]
  - Arthralgia [Recovered/Resolved]
  - Arthralgia [Unknown]

NARRATIVE: CASE EVENT DATE: 20221126
